FAERS Safety Report 4340784-4 (Version None)
Quarter: 2004Q2

REPORT INFORMATION
  Report Type: 
  Country: None (occurrence: None)
  Receive Date: 20040419
  Receipt Date: 20030605
  Transmission Date: 20050107
  Serious: No
  Sender: FDA-Public Use
  Company Number: US-GLAXOSMITHKLINE-A0411194A

PATIENT
  Age: 53 Year
  Sex: Male

DRUGS (1)
  1. ESKALITH CR [Suspect]
     Dosage: 450MG SEE DOSAGE TEXT
     Route: 048

REACTIONS (2)
  - ABDOMINAL PAIN UPPER [None]
  - FLATULENCE [None]
